FAERS Safety Report 6033337-3 (Version None)
Quarter: 2009Q1

REPORT INFORMATION
  Report Type: 
  Country: None (occurrence: None)
  Receive Date: 20090109
  Receipt Date: 20080924
  Transmission Date: 20090719
  Serious: Yes (Other)
  Sender: FDA-Public Use
  Company Number: A0749040A

PATIENT
  Sex: Male

DRUGS (2)
  1. REQUIP XL [Suspect]
     Indication: PARKINSON'S DISEASE
     Route: 048
     Dates: start: 20080101
  2. LEVODOPA [Concomitant]

REACTIONS (1)
  - LOSS OF CONSCIOUSNESS [None]
